FAERS Safety Report 9649534 (Version 3)
Quarter: 2013Q4

REPORT INFORMATION
  Report Type: Spontaneous
  Country: US (occurrence: US)
  Receive Date: 20131028
  Receipt Date: 20131202
  Transmission Date: 20140711
  Serious: Yes (Hospitalization, Other)
  Sender: FDA-Public Use
  Company Number: US-PFIZER INC-2013307551

PATIENT
  Age: 49 Year
  Sex: Female
  Weight: 79.37 kg

DRUGS (10)
  1. LYRICA [Suspect]
     Indication: PAIN IN EXTREMITY
     Dosage: 150 MG, 2X/DAY (B.I.D)
     Route: 048
     Dates: start: 2008
  2. WELLBUTRIN XL [Suspect]
     Indication: NERVOUS SYSTEM DISORDER
     Dosage: 150 MG, 1X/DAY (Q.D.)
     Route: 048
  3. WELLBUTRIN XL [Suspect]
     Indication: STRESS
  4. WELLBUTRIN XL [Suspect]
     Indication: CARDIAC DISORDER
  5. LASIX [Concomitant]
     Indication: CARDIAC DISORDER
     Dosage: 40 MG, 1X/DAY (Q.D.)
     Route: 048
  6. POTASSIUM [Concomitant]
     Indication: CARDIAC DISORDER
     Dosage: UNK
  7. COREG [Concomitant]
     Indication: CARDIAC DISORDER
     Dosage: 6.25 MG, 1X/DAY (Q.D.)
     Route: 048
  8. LISINOPRIL [Concomitant]
     Dosage: UNK
  9. ZYRTEC [Concomitant]
     Dosage: UNK
  10. ULTRAM [Concomitant]
     Dosage: 50 MG, UNK

REACTIONS (12)
  - Road traffic accident [Unknown]
  - Loss of consciousness [Unknown]
  - Dehydration [Unknown]
  - Nervousness [Unknown]
  - Body temperature increased [Unknown]
  - Uterine disorder [Unknown]
  - Renal impairment [Unknown]
  - Dizziness [Unknown]
  - Blood creatinine abnormal [Unknown]
  - Syncope [Unknown]
  - Hypovolaemia [Unknown]
  - Transaminases increased [Unknown]
